FAERS Safety Report 6501680-7 (Version None)
Quarter: 2009Q4

REPORT INFORMATION
  Report Type: 
  Country: None (occurrence: None)
  Receive Date: 20091216
  Receipt Date: 20091207
  Transmission Date: 20100525
  Serious: Yes (Hospitalization, Disabling, Other)
  Sender: FDA-Public Use
  Company Number: BE-AMGEN-QUU369523

PATIENT
  Sex: Male
  Weight: 79 kg

DRUGS (11)
  1. ARANESP [Suspect]
     Indication: RENAL FAILURE CHRONIC
     Route: 058
     Dates: start: 20080625
  2. GLURENORM [Concomitant]
     Route: 048
  3. GLUCOPHAGE [Concomitant]
     Route: 048
  4. BUMEX [Concomitant]
     Route: 048
  5. SPIRONOLACTONE [Concomitant]
     Route: 048
  6. COZAAR [Concomitant]
     Route: 048
  7. LANOXIN [Concomitant]
     Route: 048
  8. SIMVASTATIN [Concomitant]
     Route: 048
  9. PANTOPRAZOLE [Concomitant]
     Route: 048
  10. SODIUM BICARBONATE IN PLASTIC CONTAINER [Concomitant]
     Route: 048
  11. VENOFER [Concomitant]
     Route: 042
     Dates: start: 20080101

REACTIONS (5)
  - ANAEMIA [None]
  - APLASIA PURE RED CELL [None]
  - IRON DEFICIENCY [None]
  - MYELODYSPLASTIC SYNDROME [None]
  - VARICES OESOPHAGEAL [None]
